FAERS Safety Report 17584316 (Version 1)
Quarter: 2020Q1

REPORT INFORMATION
  Report Type: Report from Study
  Country: CO (occurrence: CO)
  Receive Date: 20200326
  Receipt Date: 20200326
  Transmission Date: 20200409
  Serious: Yes (Other)
  Sender: FDA-Public Use
  Company Number: CO-ROCHE-2569441

PATIENT

DRUGS (1)
  1. MABTHERA [Suspect]
     Active Substance: RITUXIMAB
     Indication: NON-HODGKIN^S LYMPHOMA
     Route: 065

REACTIONS (5)
  - Fall [Unknown]
  - Decreased immune responsiveness [Unknown]
  - Muscle spasms [Unknown]
  - Gait disturbance [Unknown]
  - Decreased appetite [Unknown]
